FAERS Safety Report 15456185 (Version 1)
Quarter: 2018Q4

REPORT INFORMATION
  Report Type: Spontaneous
  Country: US (occurrence: US)
  Receive Date: 20181002
  Receipt Date: 20181002
  Transmission Date: 20190204
  Serious: No
  Sender: FDA-Public Use
  Company Number: US-SA-2017SA035843

PATIENT
  Age: 17 Year
  Sex: Female
  Weight: 43.99 kg

DRUGS (3)
  1. BENADRYL [Concomitant]
     Active Substance: DIPHENHYDRAMINE HYDROCHLORIDE
     Dosage: 50 MG,UNK
  2. ALDURAZYME [Suspect]
     Active Substance: LARONIDASE
     Indication: MUCOPOLYSACCHARIDOSIS
     Dosage: 23.2 MG,QW
     Route: 041
     Dates: start: 20161005
  3. BENADRYL [Concomitant]
     Active Substance: DIPHENHYDRAMINE HYDROCHLORIDE
     Indication: PREMEDICATION
     Dosage: UNK

REACTIONS (3)
  - Chills [Unknown]
  - Pyrexia [Unknown]
  - Weight increased [Unknown]

NARRATIVE: CASE EVENT DATE: 20171023
